FAERS Safety Report 26192694 (Version 2)
Quarter: 2025Q4

REPORT INFORMATION
  Report Type: Spontaneous
  Country: US (occurrence: US)
  Receive Date: 20251223
  Receipt Date: 20251223
  Transmission Date: 20260118
  Serious: Yes (Other)
  Sender: ROCHE
  Company Number: US-ROCHE-10000464841

PATIENT

DRUGS (1)
  1. RITUXIMAB [Suspect]
     Active Substance: RITUXIMAB
     Indication: Lupus nephritis
     Dosage: FIRST DOSE ON LAST SEPTEMBER ;

REACTIONS (3)
  - Off label use [Unknown]
  - Influenza [Unknown]
  - Lupus nephritis [Unknown]
